FAERS Safety Report 6168942-7 (Version None)
Quarter: 2009Q2

REPORT INFORMATION
  Report Type: 
  Country: None (occurrence: None)
  Receive Date: 20090427
  Receipt Date: 20090420
  Transmission Date: 20091009
  Serious: Yes (Other)
  Sender: FDA-Public Use
  Company Number: US-JNJFOC-20090104443

PATIENT
  Sex: Male
  Weight: 90.72 kg

DRUGS (4)
  1. MOTRIN [Suspect]
     Indication: ARTHRITIS
  2. MOTRIN [Suspect]
     Indication: ARTHROPATHY
  3. ASPIRIN [Concomitant]
     Indication: RETINAL ARTERY OCCLUSION
  4. ASPIRIN [Concomitant]
     Indication: CARDIOVASCULAR EVENT PROPHYLAXIS

REACTIONS (1)
  - GASTRIC ULCER [None]
